FAERS Safety Report 7374996-2 (Version None)
Quarter: 2011Q1

REPORT INFORMATION
  Report Type: 
  Country: None (occurrence: None)
  Receive Date: 20110325
  Receipt Date: 20110314
  Transmission Date: 20110831
  Serious: Yes (Hospitalization, Other)
  Sender: FDA-Public Use
  Company Number: PHHY2011US06862

PATIENT
  Sex: Male
  Weight: 97.89 kg

DRUGS (2)
  1. EXJADE [Suspect]
     Dosage: 1500 MG, PER DAY
     Route: 048
  2. EXJADE [Suspect]
     Indication: MYELODYSPLASTIC SYNDROME
     Dosage: 2000 MG, DAILY
     Route: 048

REACTIONS (3)
  - DEVICE RELATED INFECTION [None]
  - DIARRHOEA [None]
  - PYREXIA [None]
